FAERS Safety Report 23803604 (Version 1)
Quarter: 2024Q2

REPORT INFORMATION
  Report Type: Spontaneous
  Country: US (occurrence: US)
  Receive Date: 20240501
  Receipt Date: 20240501
  Transmission Date: 20240715
  Serious: No
  Sender: FDA-Public Use
  Company Number: US-PFIZER INC-202300125712

PATIENT
  Age: 75 Year
  Sex: Female
  Weight: 95.25 kg

DRUGS (1)
  1. TOVIAZ [Suspect]
     Active Substance: FESOTERODINE FUMARATE
     Indication: Bladder disorder
     Dosage: 8 MG, 1X/DAY
     Dates: end: 20240110

REACTIONS (2)
  - Circumstance or information capable of leading to medication error [Unknown]
  - Dry mouth [Not Recovered/Not Resolved]
